FAERS Safety Report 11928971 (Version 3)
Quarter: 2016Q1

REPORT INFORMATION
  Report Type: Report from Study
  Country: US (occurrence: US)
  Receive Date: 20160120
  Receipt Date: 20160203
  Transmission Date: 20160526
  Serious: Yes (Other)
  Sender: FDA-Public Use
  Company Number: US-AMGEN-USASP2016004633

PATIENT
  Age: 52 Year
  Sex: Female

DRUGS (2)
  1. ARAVA [Concomitant]
     Active Substance: LEFLUNOMIDE
     Dosage: UNK
  2. ENBREL [Suspect]
     Active Substance: ETANERCEPT
     Indication: RHEUMATOID ARTHRITIS
     Dosage: 50MG X 1 WEEKLY
     Route: 065
     Dates: start: 201504

REACTIONS (14)
  - Facial pain [Unknown]
  - Burning sensation [Unknown]
  - Injection site discomfort [Unknown]
  - Injection site mass [Unknown]
  - Neuralgia [Unknown]
  - Pain in extremity [Unknown]
  - Neuropathy peripheral [Unknown]
  - Tooth abscess [Unknown]
  - Oral pain [Unknown]
  - Hypoaesthesia [Unknown]
  - Injection site haemorrhage [Unknown]
  - Sjogren^s syndrome [Unknown]
  - Glossodynia [Unknown]
  - Arthralgia [Unknown]
